FAERS Safety Report 8208937 (Version 2)
Quarter: 2014Q3

REPORT INFORMATION
  Report Type: Spontaneous
  Country: FR (occurrence: FR)
  Receive Date: 20111028
  Receipt Date: 20140709
  Transmission Date: 20150326
  Serious: Yes (Hospitalization, Other)
  Sender: FDA-Public Use
  Company Number: FR-BAYER-2011-104441

PATIENT
  Age: 56 Year
  Sex: Male

DRUGS (2)
  1. NEXAVAR [Suspect]
     Active Substance: SORAFENIB
     Indication: GASTROINTESTINAL CANCER METASTATIC
     Dosage: UNK
     Dates: end: 20110831
  2. KEPPRA [Concomitant]
     Active Substance: LEVETIRACETAM

REACTIONS (4)
  - Posterior reversible encephalopathy syndrome [None]
  - Leukoencephalopathy [Recovering/Resolving]
  - Hypertension [Recovering/Resolving]
  - Convulsion [Recovering/Resolving]

NARRATIVE: CASE EVENT DATE: 20110828
